FAERS Safety Report 11038611 (Version 1)
Quarter: 2015Q2

REPORT INFORMATION
  Report Type: Spontaneous
  Country: DE (occurrence: DE)
  Receive Date: 20150416
  Receipt Date: 20150416
  Transmission Date: 20150821
  Serious: Yes (Other)
  Sender: FDA-Public Use
  Company Number: DE-GLAXOSMITHKLINE-DE2015GSK038658

PATIENT
  Sex: Female
  Weight: 56.9 kg

DRUGS (1)
  1. LAMICTAL [Suspect]
     Active Substance: LAMOTRIGINE
     Indication: GENERALISED TONIC-CLONIC SEIZURE
     Dosage: 150 MG, BID
     Route: 048
     Dates: start: 2011

REACTIONS (4)
  - Tonsillitis streptococcal [Unknown]
  - Vulvovaginal candidiasis [Unknown]
  - Exposure during pregnancy [Unknown]
  - Beta haemolytic streptococcal infection [Unknown]
